FAERS Safety Report 5914476-1 (Version None)
Quarter: 2008Q4

REPORT INFORMATION
  Report Type: 
  Country: None (occurrence: None)
  Receive Date: 20081007
  Receipt Date: 20081001
  Transmission Date: 20090506
  Serious: Yes (Other)
  Sender: FDA-Public Use
  Company Number: 2008SP020080

PATIENT
  Age: 71 Year
  Sex: Female

DRUGS (9)
  1. MIRALAX [Suspect]
     Indication: DRUG USE FOR UNKNOWN INDICATION
     Dosage: PO
     Route: 048
  2. LORAZEPAM [Concomitant]
  3. NEXIUM [Concomitant]
  4. LEVOTHYROXINE SODIUM [Concomitant]
  5. ASPIRIN [Concomitant]
  6. VITAMIN [Concomitant]
  7. HUMALOG [Concomitant]
  8. LANTUS [Concomitant]
  9. SINGULAIR [Concomitant]

REACTIONS (2)
  - HAEMATOCHEZIA [None]
  - PRURITUS [None]
